FAERS Safety Report 12864946 (Version 1)
Quarter: 2016Q4

REPORT INFORMATION
  Report Type: Spontaneous
  Country: US (occurrence: US)
  Receive Date: 20161019
  Receipt Date: 20161019
  Transmission Date: 20170207
  Serious: No
  Sender: FDA-Public Use
  Company Number: None

PATIENT
  Age: 57 Year
  Sex: Female
  Weight: 69.3 kg

DRUGS (4)
  1. PROZAC [Concomitant]
     Active Substance: FLUOXETINE HYDROCHLORIDE
  2. ASPIRIN. [Concomitant]
     Active Substance: ASPIRIN
  3. BUPRENORPHINE/NALOXONE 2MG/8MG [Suspect]
     Active Substance: BUPRENORPHINE\NALOXONE
     Indication: WITHDRAWAL SYNDROME
     Dosage: ?          QUANTITY:3 SUBLINQUAL FILM;?
     Route: 060
  4. BUPRENORPHINE/NALOXONE 2MG/8MG [Suspect]
     Active Substance: BUPRENORPHINE\NALOXONE
     Indication: PROPHYLAXIS
     Dosage: ?          QUANTITY:3 SUBLINQUAL FILM;?
     Route: 060

REACTIONS (3)
  - Withdrawal syndrome [None]
  - Drug ineffective [None]
  - Product substitution issue [None]
